FAERS Safety Report 9646089 (Version 1)
Quarter: 2013Q4

REPORT INFORMATION
  Report Type: Spontaneous
  Country: US (occurrence: US)
  Receive Date: 20131025
  Receipt Date: 20131025
  Transmission Date: 20140711
  Serious: Yes (Other)
  Sender: FDA-Public Use
  Company Number: US-TEVA-411336USA

PATIENT
  Sex: Female

DRUGS (1)
  1. PACLITAXEL [Suspect]
     Indication: BREAST CANCER
     Dosage: 100MG/16.7ML

REACTIONS (2)
  - Pulmonary embolism [Unknown]
  - Oedema [Unknown]
